FAERS Safety Report 8729951 (Version 4)
Quarter: 2012Q4

REPORT INFORMATION
  Report Type: 
  Country: US (occurrence: US)
  Receive Date: 20120817
  Receipt Date: 20120918
  Transmission Date: 20130627
  Serious: Yes (Hospitalization)
  Sender: FDA-Public Use
  Company Number: US-BRISTOL-MYERS SQUIBB COMPANY-16844730

PATIENT
  Age: 47 Year
  Sex: Female
  Weight: 79 kg

DRUGS (6)
  1. COUMADINE [Suspect]
  2. LETAIRIS [Suspect]
     Indication: PULMONARY HYPERTENSION
     Dosage: Tabs
     Route: 048
     Dates: start: 20090116
  3. TREPROSTINIL [Suspect]
     Indication: PULMONARY ARTERIAL HYPERTENSION
     Dosage: 10mg/ml inj for inf,93.6mcg/kg;20Dec11-Unk,106.56mcg/kg;0.074mcg/kg;01Aug12-Unk
     Route: 058
     Dates: start: 20111220
  4. REVATIO [Concomitant]
  5. DIGOXIN [Concomitant]
  6. SPIRONOLACTONE [Concomitant]

REACTIONS (4)
  - Overdose [Unknown]
  - Compartment syndrome [Not Recovered/Not Resolved]
  - International normalised ratio increased [Not Recovered/Not Resolved]
  - Weight decreased [Unknown]
